FAERS Safety Report 19460841 (Version 2)
Quarter: 2021Q4

REPORT INFORMATION
  Report Type: Spontaneous
  Country: US (occurrence: US)
  Receive Date: 20210625
  Receipt Date: 20211004
  Transmission Date: 20220304
  Serious: No
  Sender: FDA-Public Use
  Company Number: US-PFIZER INC-2020399593

PATIENT
  Age: 63 Year
  Sex: Male
  Weight: 72.56 kg

DRUGS (10)
  1. IBRANCE [Suspect]
     Active Substance: PALBOCICLIB
     Indication: Connective tissue neoplasm
     Dosage: 125 MG, CYCLIC (21 DAYS ON, 7 DAYS OFF)
     Route: 048
     Dates: start: 20200911
  2. IBRANCE [Suspect]
     Active Substance: PALBOCICLIB
     Indication: Liposarcoma
     Dosage: 125 MG, CYCLIC (21 DAYS ON, 7 DAYS OFF)
     Route: 048
     Dates: start: 20200911
  3. CALCIUM CARBONATE [Concomitant]
     Active Substance: CALCIUM CARBONATE
     Dosage: UNK
  4. FISH OIL [Concomitant]
     Active Substance: FISH OIL
     Dosage: UNK
  5. VITAMIN D3 [Concomitant]
     Active Substance: CHOLECALCIFEROL
     Dosage: UNK
  6. CEPHALEXIN [Concomitant]
     Active Substance: CEPHALEXIN
  7. TRAMADOL HCL [Concomitant]
     Active Substance: TRAMADOL HYDROCHLORIDE
     Dosage: UNK
  8. OXYCODONE [Concomitant]
     Active Substance: OXYCODONE
     Dosage: UNK
  9. FINASTERIDE [Concomitant]
     Active Substance: FINASTERIDE
     Dosage: UNK
  10. GABAPENTIN [Concomitant]
     Active Substance: GABAPENTIN
     Dosage: UNK

REACTIONS (2)
  - Urinary tract infection [Unknown]
  - Off label use [Unknown]

NARRATIVE: CASE EVENT DATE: 20200911
